FAERS Safety Report 7197265-2 (Version None)
Quarter: 2010Q4

REPORT INFORMATION
  Report Type: 
  Country: None (occurrence: None)
  Receive Date: 20101226
  Receipt Date: 20101214
  Transmission Date: 20110411
  Serious: Yes (Hospitalization)
  Sender: FDA-Public Use
  Company Number: ES-ELI_LILLY_AND_COMPANY-ES201012003560

PATIENT
  Sex: Female
  Weight: 78 kg

DRUGS (9)
  1. FORTEO [Suspect]
     Indication: OSTEOPOROSIS
     Dosage: 20 UG, DAILY (1/D)
     Route: 058
     Dates: start: 20101015, end: 20101103
  2. CALCIO [Concomitant]
     Indication: OSTEOPOROSIS
     Dosage: 1 D/F, DAILY (1/D)
     Route: 048
  3. SINTROM [Concomitant]
     Indication: ARRHYTHMIA
     Dosage: UNK, AS NEEDED (DEPENDING ON HAEMATOLOGY RESULTS)
     Route: 048
  4. LYRICA [Concomitant]
     Indication: INSOMNIA
     Dosage: 1 D/F, DAILY (1/D)
     Route: 048
  5. VOLTAREN                                /SCH/ [Concomitant]
     Indication: PAIN
     Dosage: UNK, AS NEEDED
     Route: 048
  6. TERMALGIN [Concomitant]
     Indication: PAIN
     Dosage: UNK, AS NEEDED
     Route: 048
  7. MORFINA                            /00036302/ [Concomitant]
     Indication: PAIN
     Dosage: 50 UG, DAILY (1/D)
     Route: 062
  8. MORFINA                            /00036302/ [Concomitant]
     Dosage: 25 UG, DAILY (1/D)
     Route: 062
     Dates: start: 20101105
  9. FOSAMAX [Concomitant]
     Indication: OSTEOPOROSIS
     Dosage: 1 D/F, MONTHLY (1/M)
     Route: 048

REACTIONS (4)
  - DECREASED APPETITE [None]
  - DEPRESSION [None]
  - PSYCHOTIC DISORDER [None]
  - VOMITING [None]
